FAERS Safety Report 9469855 (Version 1)
Quarter: 2013Q3

REPORT INFORMATION
  Report Type: Spontaneous
  Country: TH (occurrence: TH)
  Receive Date: 20130822
  Receipt Date: 20130822
  Transmission Date: 20140515
  Serious: Yes (Other)
  Sender: FDA-Public Use
  Company Number: TH-JNJFOC-20130809818

PATIENT
  Sex: 0

DRUGS (1)
  1. HALOPERIDOL [Suspect]
     Indication: DELIRIUM
     Dosage: 0.5-2MG/DAY. BEFORE BEDTIME AND AS NEEDED.
     Route: 048

REACTIONS (1)
  - Atrioventricular block [Unknown]
